FAERS Safety Report 8339495 (Version 3)
Quarter: 2012Q4

REPORT INFORMATION
  Report Type: 
  Country: US (occurrence: US)
  Receive Date: 20120117
  Receipt Date: 20121220
  Transmission Date: 20130627
  Serious: Yes (Hospitalization)
  Sender: FDA-Public Use
  Company Number: US-GLAXOSMITHKLINE-B0775495A

PATIENT
  Sex: Male

DRUGS (1)
  1. AVANDIA [Suspect]
     Indication: DIABETES MELLITUS
     Dosage: 8MG Unknown
     Route: 048
     Dates: start: 20050511, end: 20060315

REACTIONS (4)
  - Myocardial infarction [Not Recovered/Not Resolved]
  - Renal failure [Unknown]
  - Hepatic enzyme increased [Unknown]
  - Chest pain [Unknown]
